FAERS Safety Report 13953820 (Version 1)
Quarter: 2017Q3

REPORT INFORMATION
  Report Type: Spontaneous
  Country: US (occurrence: US)
  Receive Date: 20170908
  Receipt Date: 20170908
  Transmission Date: 20171128
  Serious: Yes (Other)
  Sender: FDA-Public Use
  Company Number: None

PATIENT
  Age: 65 Year
  Sex: Female
  Weight: 74.25 kg

DRUGS (16)
  1. IBUPROFEN. [Concomitant]
     Active Substance: IBUPROFEN
  2. MAGNESIUM [Concomitant]
     Active Substance: MAGNESIUM
  3. CALCIUM [Concomitant]
     Active Substance: CALCIUM
  4. HYDROCODONE [Concomitant]
     Active Substance: HYDROCODONE
  5. VITAMIN D [Concomitant]
     Active Substance: CHOLECALCIFEROL
  6. BIOTIN [Concomitant]
     Active Substance: BIOTIN
  7. LYRICA [Suspect]
     Active Substance: PREGABALIN
     Indication: NEURALGIA
     Route: 048
  8. GLUCOSAMINE/CHONDRITIN [Concomitant]
  9. LYRICA [Suspect]
     Active Substance: PREGABALIN
     Indication: SCOLIOSIS
     Route: 048
  10. ESCITALOPRAM [Concomitant]
     Active Substance: ESCITALOPRAM OXALATE
  11. FLAXSEED [Concomitant]
     Active Substance: FLAX SEED
  12. VITAMIN B12 [Concomitant]
     Active Substance: CYANOCOBALAMIN
  13. LYRICA [Suspect]
     Active Substance: PREGABALIN
     Indication: ARTHRITIS
     Route: 048
  14. OXYCODONE [Concomitant]
     Active Substance: OXYCODONE
  15. ALPRAZOLAM. [Concomitant]
     Active Substance: ALPRAZOLAM
  16. CYCLOBENZAPRINE. [Concomitant]
     Active Substance: CYCLOBENZAPRINE

REACTIONS (2)
  - Fear [None]
  - Withdrawal syndrome [None]

NARRATIVE: CASE EVENT DATE: 20170904
